FAERS Safety Report 5794326-7 (Version None)
Quarter: 2008Q2

REPORT INFORMATION
  Report Type: 
  Country: None (occurrence: None)
  Receive Date: 20080625
  Receipt Date: 20080603
  Transmission Date: 20081010
  Serious: Yes (Disabling, Other)
  Sender: FDA-Public Use
  Company Number: US-1166447

PATIENT
  Age: 35 Year
  Sex: Male

DRUGS (2)
  1. NEVANAC [Suspect]
     Indication: PROPHYLAXIS
     Dosage: (Q2H OPHTHALMIC)
     Route: 047
  2. TOBRADEX [Suspect]
     Indication: PROPHYLAXIS
     Dosage: (Q2H OPHTHALMIC)
     Route: 047

REACTIONS (5)
  - ACANTHAMOEBA INFECTION [None]
  - AUTOIMMUNE DISORDER [None]
  - CULTURE POSITIVE [None]
  - STAPHYLOCOCCAL INFECTION [None]
  - ULCERATIVE KERATITIS [None]
